FAERS Safety Report 6958531-6 (Version None)
Quarter: 2010Q3

REPORT INFORMATION
  Report Type: 
  Country: None (occurrence: None)
  Receive Date: 20100831
  Receipt Date: 20100823
  Transmission Date: 20110219
  Serious: Yes (Other)
  Sender: FDA-Public Use
  Company Number: PT-ROCHE-723026

PATIENT
  Sex: Female
  Weight: 63 kg

DRUGS (9)
  1. HERCEPTIN [Suspect]
     Indication: BREAST CANCER
     Dosage: INITIAL DOSE (LOADING DOSE).
     Route: 042
     Dates: start: 20100412
  2. HERCEPTIN [Suspect]
     Dosage: REPORTED AS HERCEPTIN POWDER FOR CONCENTRATE FOR SOLUTION INFUSION 150 MG.
     Route: 042
     Dates: start: 20100503, end: 20100705
  3. AMLODIPINE BESYLATE [Concomitant]
     Indication: HYPERTENSION
     Dosage: DOSE: 1 UNITARY, FREQUENCY: DAILY
     Route: 048
  4. ENALAPRIL MALEATE [Concomitant]
     Indication: HYPERTENSION
     Dosage: DOSE: 1 UNITARY, FREQUENCY: DAILY
     Route: 048
  5. HYDROCHLOROTHIAZIDE [Concomitant]
     Indication: HYPERTENSION
     Dosage: DOSE: 1 UNITARY, FREQUENCY: DAILY
     Route: 048
  6. ZOLPIDEM TARTRATE [Concomitant]
     Indication: ANXIETY
     Dosage: DOSE: 1 UNITARY, FREQUENCY: DAILY
     Route: 048
  7. ALPRAZOLAM [Concomitant]
     Indication: ANXIETY
     Dosage: DOSE: 1 UNITARY, FREQUENCY: DAILY
     Route: 048
  8. ALLOPURINOL [Concomitant]
     Dosage: DOSE: 1 UNITARY, FREQUENCY: DAILY
     Route: 048
  9. ETODOLAC [Concomitant]
     Dosage: FREQUENCY: DAILY
     Route: 048

REACTIONS (1)
  - RENAL FAILURE CHRONIC [None]
